FAERS Safety Report 8588337-6 (Version None)
Quarter: 2012Q3

REPORT INFORMATION
  Report Type: 
  Country: None (occurrence: None)
  Receive Date: 20120813
  Receipt Date: 20120730
  Transmission Date: 20120928
  Serious: Yes (Hospitalization)
  Sender: FDA-Public Use
  Company Number: US-ELI_LILLY_AND_COMPANY-US201108002814

PATIENT
  Sex: Male

DRUGS (7)
  1. ZYPREXA [Suspect]
     Dosage: 15 MG, QD
  2. SEROQUEL [Concomitant]
     Indication: SLEEP DISORDER
  3. ZYPREXA [Suspect]
     Dosage: 15 MG, QD
  4. ZYPREXA [Suspect]
     Dosage: 20 MG, UNK
     Dates: start: 20120401
  5. ZYPREXA [Suspect]
     Dosage: 20 MG, QD
  6. ZYPREXA [Suspect]
     Dosage: 25 MG, UNK
  7. ZYPREXA [Suspect]
     Dosage: 15 MG, QD

REACTIONS (6)
  - OVERDOSE [None]
  - WRONG TECHNIQUE IN DRUG USAGE PROCESS [None]
  - SCHIZOPHRENIA [None]
  - PARANOIA [None]
  - DRUG INEFFECTIVE [None]
  - DEPRESSED MOOD [None]
